FAERS Safety Report 17913358 (Version 1)
Quarter: 2020Q2

REPORT INFORMATION
  Report Type: Spontaneous
  Country: US (occurrence: US)
  Receive Date: 20200618
  Receipt Date: 20200618
  Transmission Date: 20200714
  Serious: No
  Sender: FDA-Public Use
  Company Number: US-THERAPEUTICSMD-2020TMD01584

PATIENT
  Age: 51 Year
  Sex: Female
  Weight: 78.46 kg

DRUGS (16)
  1. ALLEGRA 24 [Concomitant]
  2. DEPO-PROVERA [Concomitant]
     Active Substance: MEDROXYPROGESTERONE ACETATE
  3. TAGAMET [Concomitant]
     Active Substance: CIMETIDINE
  4. LISINOPRIL. [Concomitant]
     Active Substance: LISINOPRIL
  5. NASONEX [Concomitant]
     Active Substance: MOMETASONE FUROATE
  6. IMVEXXY [Suspect]
     Active Substance: ESTRADIOL
     Indication: ATROPHIC VULVOVAGINITIS
     Dosage: 4 ?G, 2X/WEEK BEFORE BED
     Route: 067
     Dates: start: 201912, end: 20200311
  7. OXCARBAZEPINE. [Concomitant]
     Active Substance: OXCARBAZEPINE
  8. PROTONIX [Concomitant]
     Active Substance: PANTOPRAZOLE SODIUM
  9. UNSPECIFIED HAIR PRODUCTS [Suspect]
     Active Substance: UNSPECIFIED INGREDIENT
     Dosage: WEANING OFF
  10. CARISOPRODOL. [Concomitant]
     Active Substance: CARISOPRODOL
  11. FISH OIL [Concomitant]
     Active Substance: FISH OIL
  12. UNSPECIFIED COSMETICS [Suspect]
     Active Substance: COSMETICS
     Dosage: WEANING OFF
  13. VITAMIN D 5000 [Concomitant]
  14. VITAMIN B12 [Concomitant]
     Active Substance: CYANOCOBALAMIN
  15. RITUXAN [Concomitant]
     Active Substance: RITUXIMAB
  16. PROPRANOLOL [Concomitant]
     Active Substance: PROPRANOLOL HYDROCHLORIDE

REACTIONS (4)
  - Skin lesion [Recovering/Resolving]
  - Allergic reaction to excipient [Recovering/Resolving]
  - Off label use [Not Recovered/Not Resolved]
  - Urticaria [Recovering/Resolving]

NARRATIVE: CASE EVENT DATE: 201912
